FAERS Safety Report 9752096 (Version 3)
Quarter: 2014Q1

REPORT INFORMATION
  Report Type: Spontaneous
  Country: GB (occurrence: GB)
  Receive Date: 20131213
  Receipt Date: 20140110
  Transmission Date: 20141002
  Serious: Yes (Hospitalization)
  Sender: FDA-Public Use
  Company Number: PHFR2013GB007080

PATIENT
  Age: 60 Year
  Sex: Female

DRUGS (4)
  1. CLOZARIL [Suspect]
     Indication: SCHIZOPHRENIA
     Dosage: UNK
     Route: 048
     Dates: start: 20010701
  2. OMEPRAZOLE [Concomitant]
     Dosage: 10 MG, NOCTE
     Route: 048
  3. TEMAZEPAM [Concomitant]
     Dosage: 10 MG, NOCTE
     Route: 048
  4. CLOZAPINE [Concomitant]
     Indication: SCHIZOPHRENIA
     Dosage: 100 MG MANE AND 300 MG NOCTE
     Route: 048

REACTIONS (2)
  - Pneumonia [Recovered/Resolved]
  - Lung consolidation [Unknown]
